FAERS Safety Report 25744036 (Version 1)
Quarter: 2025Q3

REPORT INFORMATION
  Report Type: Report from Study
  Country: US (occurrence: US)
  Receive Date: 20250831
  Receipt Date: 20250831
  Transmission Date: 20251020
  Serious: Yes (Other)
  Sender: ABBVIE
  Company Number: US-ABBVIE-6435310

PATIENT
  Age: 65 Year
  Sex: Male

DRUGS (1)
  1. SKYRIZI [Suspect]
     Active Substance: RISANKIZUMAB-RZAA
     Indication: Crohn^s disease
     Route: 058
     Dates: start: 202407

REACTIONS (4)
  - Arterial occlusive disease [Not Recovered/Not Resolved]
  - Scar [Unknown]
  - Skin haemorrhage [Unknown]
  - Fistula [Unknown]

NARRATIVE: CASE EVENT DATE: 20250101
